FAERS Safety Report 8975158 (Version 2)
Quarter: 2013Q2

REPORT INFORMATION
  Report Type: Report from Study
  Country: US (occurrence: US)
  Receive Date: 20121219
  Receipt Date: 20130621
  Transmission Date: 20140414
  Serious: Yes (Other)
  Sender: FDA-Public Use
  Company Number: US-US-EMD SERONO, INC.-7182494

PATIENT
  Sex: Female
  Weight: 71 kg

DRUGS (5)
  1. REBIF [Suspect]
     Indication: MULTIPLE SCLEROSIS
     Dates: start: 20070712, end: 20081101
  2. REBIF [Suspect]
     Route: 058
     Dates: start: 20090604
  3. GABAPENTIN [Concomitant]
     Indication: PRODUCT USED FOR UNKNOWN INDICATION
  4. TRAMADOL [Concomitant]
     Indication: PREMEDICATION
  5. BACLOFEN [Concomitant]
     Indication: PRODUCT USED FOR UNKNOWN INDICATION

REACTIONS (9)
  - Uterine leiomyoma [Not Recovered/Not Resolved]
  - Dysarthria [Unknown]
  - Amnesia [Unknown]
  - Loss of libido [Not Recovered/Not Resolved]
  - Vision blurred [Unknown]
  - Influenza like illness [Unknown]
  - Injection site rash [Unknown]
  - Injection site erythema [Unknown]
  - Injection site pain [Unknown]
